FAERS Safety Report 8163286-6 (Version None)
Quarter: 2012Q1

REPORT INFORMATION
  Report Type: 
  Country: None (occurrence: None)
  Receive Date: 20120224
  Receipt Date: 20111017
  Transmission Date: 20120608
  Serious: No
  Sender: FDA-Public Use
  Company Number: US-PFIZER INC-K201101238

PATIENT
  Sex: Female

DRUGS (2)
  1. RELAFEN [Suspect]
     Indication: INFLAMMATION
     Dosage: UNK
  2. FLECTOR [Suspect]
     Indication: ARTHRALGIA
     Dosage: 1 PATCH, BID
     Route: 061
     Dates: start: 20101213, end: 20110915

REACTIONS (1)
  - LIPOATROPHY [None]
